FAERS Safety Report 25593468 (Version 1)
Quarter: 2025Q3

REPORT INFORMATION
  Report Type: Spontaneous
  Country: US (occurrence: US)
  Receive Date: 20250722
  Receipt Date: 20250722
  Transmission Date: 20251020
  Serious: Yes (Hospitalization)
  Sender: MERCK SHARP & DOHME LLC
  Company Number: US-009507513-2311227

PATIENT
  Age: 74 Year
  Sex: Male

DRUGS (2)
  1. PEMBROLIZUMAB [Suspect]
     Active Substance: PEMBROLIZUMAB
     Indication: Bladder cancer stage IV
  2. ENFORTUMAB [Suspect]
     Active Substance: ENFORTUMAB
     Indication: Bladder cancer stage IV

REACTIONS (2)
  - Pulmonary embolism [Recovering/Resolving]
  - Pneumonitis [Recovering/Resolving]
